FAERS Safety Report 9537400 (Version 1)
Quarter: 2013Q3

REPORT INFORMATION
  Report Type: Spontaneous
  Country: US (occurrence: None)
  Receive Date: 20130918
  Receipt Date: 20130918
  Transmission Date: 20140515
  Serious: Yes (Other)
  Sender: FDA-Public Use
  Company Number: None

PATIENT
  Age: 75 Year
  Sex: Male
  Weight: 90.72 kg

DRUGS (1)
  1. CARBIDOPA/LEVODOPA [Suspect]
     Indication: PARKINSON^S DISEASE
     Dosage: VARIOUS

REACTIONS (8)
  - Blood pressure fluctuation [None]
  - Loss of consciousness [None]
  - Abdominal pain upper [None]
  - Sudden onset of sleep [None]
  - Middle insomnia [None]
  - Constipation [None]
  - Obsessive-compulsive disorder [None]
  - Sexual dysfunction [None]
